FAERS Safety Report 18876669 (Version 2)
Quarter: 2022Q2

REPORT INFORMATION
  Report Type: Spontaneous
  Country: US (occurrence: US)
  Receive Date: 20210211
  Receipt Date: 20220527
  Transmission Date: 20220721
  Serious: No
  Sender: FDA-Public Use
  Company Number: US-ELI_LILLY_AND_COMPANY-US202102001930

PATIENT
  Sex: Male

DRUGS (4)
  1. TRULICITY [Suspect]
     Active Substance: DULAGLUTIDE
     Indication: Type 2 diabetes mellitus
     Dosage: 1.5 MG, UNKNOWN
     Route: 058
     Dates: start: 2020
  2. JARDIANCE [Concomitant]
     Active Substance: EMPAGLIFLOZIN
     Indication: Product used for unknown indication
  3. LANTUS [Concomitant]
     Active Substance: INSULIN GLARGINE
     Indication: Product used for unknown indication
     Dosage: 20 U, UNKNOWN
     Route: 065
  4. LANTUS [Concomitant]
     Active Substance: INSULIN GLARGINE
     Dosage: 30 U, UNKNOWN
     Route: 065

REACTIONS (4)
  - Blood glucose increased [Recovered/Resolved]
  - Blood glucose increased [Unknown]
  - Blood glucose fluctuation [Unknown]
  - Product storage error [Unknown]
